FAERS Safety Report 25132195 (Version 1)
Quarter: 2025Q1

REPORT INFORMATION
  Report Type: Spontaneous
  Country: US (occurrence: US)
  Receive Date: 20250328
  Receipt Date: 20250328
  Transmission Date: 20250408
  Serious: Yes (Other)
  Sender: AMGEN
  Company Number: US-AMGEN-USASP2025059246

PATIENT
  Age: 58 Year
  Sex: Male

DRUGS (1)
  1. ADALIMUMAB [Suspect]
     Active Substance: ADALIMUMAB
     Indication: Psoriatic arthropathy
     Route: 065

REACTIONS (4)
  - Leukopenia [Recovering/Resolving]
  - Telangiectasia [Recovering/Resolving]
  - Erythromelalgia [Recovering/Resolving]
  - Anaemia [Recovering/Resolving]
